FAERS Safety Report 25202628 (Version 1)
Quarter: 2025Q2

REPORT INFORMATION
  Report Type: Other
  Country: TR (occurrence: TR)
  Receive Date: 20250416
  Receipt Date: 20250416
  Transmission Date: 20250716
  Serious: Yes (Hospitalization, Other)
  Sender: ALVOGEN
  Company Number: TR-ALVOGEN-2025096747

PATIENT
  Age: 45 Year
  Sex: Male

DRUGS (2)
  1. FENTANYL [Suspect]
     Active Substance: FENTANYL
     Indication: Pain
     Route: 062
  2. FENTANYL [Suspect]
     Active Substance: FENTANYL
     Indication: Pain
     Route: 062

REACTIONS (9)
  - Toxicity to various agents [Unknown]
  - Unresponsive to stimuli [Unknown]
  - Cardiac arrest [Unknown]
  - Renal impairment [Unknown]
  - Ventricular hypokinesia [Recovered/Resolved]
  - Electrocardiogram abnormal [Recovered/Resolved]
  - Hepatic function abnormal [Unknown]
  - Loss of consciousness [Recovered/Resolved]
  - Intentional product use issue [Unknown]
